FAERS Safety Report 4788504-3 (Version None)
Quarter: 2005Q4

REPORT INFORMATION
  Report Type: 
  Country: None (occurrence: None)
  Receive Date: 20051005
  Receipt Date: 20050708
  Transmission Date: 20060501
  Serious: Yes (Life-Threatening, Hospitalization)
  Sender: FDA-Public Use
  Company Number: ZA-SANOFI-SYNTHELABO-F01200501212

PATIENT
  Sex: Male
  Weight: 75 kg

DRUGS (5)
  1. CLOPIDOGREL [Suspect]
     Indication: ACUTE CORONARY SYNDROME
     Dosage: UNK
     Dates: start: 20050613, end: 20050620
  2. RAMIPRIL [Concomitant]
     Indication: HYPERTENSION
  3. AMIODARONE [Concomitant]
     Indication: ATRIAL FIBRILLATION
     Route: 065
  4. ASPIRIN [Concomitant]
     Indication: MYOCARDIAL ISCHAEMIA
     Dosage: 81 MG
     Route: 065
     Dates: start: 20050611
  5. FUROSEMIDE [Concomitant]
     Indication: MYOCARDIAL ISCHAEMIA
     Dosage: 40 MG
     Route: 065

REACTIONS (10)
  - ANAEMIA [None]
  - CARDIOGENIC SHOCK [None]
  - HYPOXIC ENCEPHALOPATHY [None]
  - MYOCARDIAL INFARCTION [None]
  - PNEUMONIA [None]
  - PULMONARY OEDEMA [None]
  - RENAL FAILURE ACUTE [None]
  - RETROPERITONEAL HAEMATOMA [None]
  - THROMBOSIS IN DEVICE [None]
  - VASCULAR OPERATION [None]
